FAERS Safety Report 8786028 (Version 2)
Quarter: 2015Q2

REPORT INFORMATION
  Report Type: Report from Study
  Country: US (occurrence: US)
  Receive Date: 20120914
  Receipt Date: 20150408
  Transmission Date: 20150821
  Serious: Yes (Death)
  Sender: FDA-Public Use
  Company Number: US-ROCHE-1127517

PATIENT
  Age: 68 Year
  Sex: Female

DRUGS (19)
  1. AVASTIN [Suspect]
     Active Substance: BEVACIZUMAB
     Route: 042
  2. MAGNESIUM SULPHATE [Concomitant]
     Active Substance: MAGNESIUM SULFATE
     Route: 042
  3. AVASTIN [Suspect]
     Active Substance: BEVACIZUMAB
     Indication: CERVIX CARCINOMA
     Route: 042
     Dates: start: 20090807
  4. ZIAC (UNITED STATES) [Concomitant]
  5. AVASTIN [Suspect]
     Active Substance: BEVACIZUMAB
     Indication: OVARIAN CANCER
     Route: 042
  6. IBUPROFEN. [Concomitant]
     Active Substance: IBUPROFEN
  7. PLENDIL [Concomitant]
     Active Substance: FELODIPINE
  8. AVASTIN [Suspect]
     Active Substance: BEVACIZUMAB
     Route: 042
  9. DEXAMETHASONE. [Concomitant]
     Active Substance: DEXAMETHASONE
     Route: 042
  10. GEMCITABINE [Concomitant]
     Active Substance: GEMCITABINE\GEMCITABINE HYDROCHLORIDE
     Route: 042
  11. GEMCITABINE [Concomitant]
     Active Substance: GEMCITABINE\GEMCITABINE HYDROCHLORIDE
     Route: 042
  12. POTASSIUM CHLORIDE. [Concomitant]
     Active Substance: POTASSIUM CHLORIDE
     Dosage: 20 MCQ
     Route: 065
  13. DIPHENHYDRAMINE [Concomitant]
     Active Substance: DIPHENHYDRAMINE
     Route: 042
  14. SPIRIVA [Concomitant]
     Active Substance: TIOTROPIUM BROMIDE MONOHYDRATE
  15. GEMCITABINE [Concomitant]
     Active Substance: GEMCITABINE\GEMCITABINE HYDROCHLORIDE
     Route: 042
  16. FAMOTIDINE. [Concomitant]
     Active Substance: FAMOTIDINE
     Route: 042
  17. PALONOSETRON [Concomitant]
     Active Substance: PALONOSETRON
     Route: 042
  18. ALBUTEROL. [Concomitant]
     Active Substance: ALBUTEROL
     Route: 065
  19. GEMCITABINE [Concomitant]
     Active Substance: GEMCITABINE\GEMCITABINE HYDROCHLORIDE
     Route: 042

REACTIONS (10)
  - Death [Fatal]
  - Musculoskeletal discomfort [Unknown]
  - Abdominal distension [Unknown]
  - Nausea [Unknown]
  - Abdominal pain [Unknown]
  - Weight decreased [Unknown]
  - Hypoaesthesia [Unknown]
  - Back pain [Unknown]
  - Paraesthesia [Unknown]
  - Vomiting [Unknown]

NARRATIVE: CASE EVENT DATE: 20100326
